FAERS Safety Report 16885264 (Version 1)
Quarter: 2019Q4

REPORT INFORMATION
  Report Type: Report from Study
  Country: US (occurrence: US)
  Receive Date: 20191004
  Receipt Date: 20191004
  Transmission Date: 20200122
  Serious: Yes (Death)
  Sender: FDA-Public Use
  Company Number: US-PFIZER INC-2019424062

PATIENT
  Sex: Male

DRUGS (4)
  1. BEVACIZUMAB. [Suspect]
     Active Substance: BEVACIZUMAB
     Indication: HORMONE-REFRACTORY PROSTATE CANCER
     Dosage: 15 MG/KG, EVERY 3 WEEKS (AFTER DOCETAXEL ON DAY 2)
     Route: 042
  2. TAXOTERE [Suspect]
     Active Substance: DOCETAXEL
     Indication: HORMONE-REFRACTORY PROSTATE CANCER
     Dosage: 70 MG/M2, EVERY 3 WEEKS (ON DAY 2 INTRAVENOUSLY OVER 1 HOUR)
     Route: 042
  3. DECADRON [Suspect]
     Active Substance: DEXAMETHASONE
     Indication: HORMONE-REFRACTORY PROSTATE CANCER
     Dosage: 8 MG, EVERY 3 WEEKS (TWICE DAILY ON DAYS 1 THROUGH 3)
  4. EMCYT [Suspect]
     Active Substance: ESTRAMUSTINE PHOSPHATE SODIUM
     Indication: HORMONE-REFRACTORY PROSTATE CANCER
     Dosage: 280 MG,, EVERY 3 WEEKS (3 TIMES DAILY ON DAYS 1 THROUGH 5 OF EVERY CYCLE)
     Route: 048

REACTIONS (1)
  - Infection [Fatal]
